FAERS Safety Report 9278391 (Version 5)
Quarter: 2013Q3

REPORT INFORMATION
  Report Type: Spontaneous
  Country: GB (occurrence: GB)
  Receive Date: 20130508
  Receipt Date: 20130821
  Transmission Date: 20140515
  Serious: Yes (Hospitalization)
  Sender: FDA-Public Use
  Company Number: GB-JNJFOC-20130500691

PATIENT
  Age: 65 Year
  Sex: Female
  Weight: 60 kg

DRUGS (14)
  1. DOXORUBICIN [Suspect]
     Indication: PLASMA CELL MYELOMA
     Dosage: ON DAYS 1-4; 4/28 DAYS
     Route: 042
     Dates: start: 20130416, end: 20130527
  2. DOXORUBICIN [Suspect]
     Indication: PLASMA CELL MYELOMA
     Dosage: ON DAYS 1-4; 4/28 DAYS
     Route: 042
     Dates: start: 20130318, end: 20130407
  3. VELCADE [Suspect]
     Indication: PLASMA CELL MYELOMA
     Dosage: ON DAYS 1, 4, 8, 11
     Route: 058
     Dates: start: 20130416, end: 20130506
  4. VELCADE [Suspect]
     Indication: PLASMA CELL MYELOMA
     Dosage: ON DAYS 1, 4, 8, 11
     Route: 058
     Dates: start: 20130318, end: 20130407
  5. DEXAMETHASONE [Suspect]
     Indication: PLASMA CELL MYELOMA
     Dosage: WEEK 1, 2 AND 3; 3/4 WEEKS
     Route: 048
     Dates: start: 20130318, end: 20130407
  6. VENTOLIN [Concomitant]
     Indication: CHRONIC OBSTRUCTIVE PULMONARY DISEASE
     Route: 055
  7. DIAZEPAM [Concomitant]
     Indication: DEPRESSION
     Route: 048
  8. CITALOPRAM [Concomitant]
     Indication: DEPRESSION
     Route: 048
  9. ALLOPURINOL [Concomitant]
     Indication: PROPHYLAXIS
     Route: 048
  10. ACICLOVIR [Concomitant]
     Indication: PROPHYLAXIS
     Route: 048
  11. FLUCONAZOLE [Concomitant]
     Indication: PROPHYLAXIS
     Route: 048
  12. LANSOPRAZOLE [Concomitant]
     Indication: ANTACID THERAPY
     Route: 048
  13. MAXOLON [Concomitant]
     Indication: PROPHYLAXIS OF NAUSEA AND VOMITING
     Route: 048
  14. COTRIMOXAZOLE [Concomitant]
     Indication: PROPHYLAXIS
     Route: 048

REACTIONS (1)
  - Pneumonia [Recovered/Resolved]
